FAERS Safety Report 16357819 (Version 1)
Quarter: 2019Q2

REPORT INFORMATION
  Report Type: Report from Study
  Country: US (occurrence: US)
  Receive Date: 20190527
  Receipt Date: 20190527
  Transmission Date: 20190711
  Serious: No
  Sender: FDA-Public Use
  Company Number: US-IPSEN BIOPHARMACEUTICALS, INC.-2019-08131

PATIENT
  Sex: Female

DRUGS (2)
  1. SOMATULINE DEPOT [Suspect]
     Active Substance: LANREOTIDE ACETATE
     Indication: CARCINOID TUMOUR OF THE DUODENUM
     Dosage: 120 MG EVERY 4 WEEKS IN UPPER OUTER BUTTOCKS AND ROTATE BETWEEN SIDES
     Route: 058
     Dates: start: 20161013
  2. SOMATULINE DEPOT [Suspect]
     Active Substance: LANREOTIDE ACETATE
     Indication: METASTATIC CARCINOID TUMOUR

REACTIONS (1)
  - Flatulence [Not Recovered/Not Resolved]
